FAERS Safety Report 20061187 (Version 1)
Quarter: 2021Q4

REPORT INFORMATION
  Report Type: Spontaneous
  Country: US (occurrence: None)
  Receive Date: 20211112
  Receipt Date: 20211112
  Transmission Date: 20220304
  Serious: No
  Sender: FDA-Public Use
  Company Number: 2021A792570

PATIENT
  Sex: Male

DRUGS (1)
  1. FARXIGA [Suspect]
     Active Substance: DAPAGLIFLOZIN PROPANEDIOL
     Indication: Kidney infection
     Route: 048

REACTIONS (3)
  - Malaise [Recovered/Resolved]
  - Flank pain [Recovered/Resolved]
  - Glomerular filtration rate abnormal [Unknown]
